FAERS Safety Report 7640223-1 (Version None)
Quarter: 2011Q3

REPORT INFORMATION
  Report Type: 
  Country: None (occurrence: None)
  Receive Date: 20110728
  Receipt Date: 20110718
  Transmission Date: 20111222
  Serious: Yes (Hospitalization, Other)
  Sender: FDA-Public Use
  Company Number: US-BAYER-2011-003127

PATIENT
  Age: 24 Year
  Sex: Female
  Weight: 113 kg

DRUGS (7)
  1. YASMIN [Suspect]
     Indication: CONTRACEPTION
     Dosage: UNK
     Dates: start: 20020101, end: 20100101
  2. RANITIDINE [Concomitant]
     Dosage: UNK UNK, PRN
  3. NAPROSYN [Concomitant]
     Dosage: UNK
     Dates: start: 19880101
  4. DROSPIRENONE AND ETHINYL ESTRADIOL [Suspect]
     Indication: CONTRACEPTION
     Dosage: UNK
     Dates: start: 20020101, end: 20100101
  5. ADVIL LIQUI-GELS [Concomitant]
     Dosage: UNK
     Dates: start: 19880101
  6. YAZ [Suspect]
     Indication: CONTRACEPTION
     Dosage: UNK
     Dates: start: 20020101, end: 20100101
  7. ALBUTEROL SULFATE AUTOHALER [Concomitant]
     Dosage: UNK UNK, PRN
     Dates: start: 19950101

REACTIONS (8)
  - ABDOMINAL PAIN UPPER [None]
  - PAIN [None]
  - GALLBLADDER DISORDER [None]
  - EMOTIONAL DISTRESS [None]
  - CHOLECYSTITIS CHRONIC [None]
  - ANXIETY [None]
  - CHOLELITHIASIS [None]
  - FEAR [None]
